FAERS Safety Report 4883096-2 (Version None)
Quarter: 2006Q1

REPORT INFORMATION
  Report Type: 
  Country: None (occurrence: None)
  Receive Date: 20060118
  Receipt Date: 20060111
  Transmission Date: 20060701
  Serious: Yes (Other)
  Sender: FDA-Public Use
  Company Number: US-JNJFOC-20060102805

PATIENT
  Sex: Female
  Weight: 65.77 kg

DRUGS (10)
  1. LEVAQUIN [Suspect]
     Route: 048
     Dates: start: 20051116, end: 20051120
  2. GUAIFEN [Concomitant]
     Indication: NASAL DECONGESTION THERAPY
     Route: 048
  3. MULTIVITAMIN [Concomitant]
     Route: 048
  4. MULTIVITAMIN [Concomitant]
     Route: 048
  5. MULTIVITAMIN [Concomitant]
     Route: 048
  6. MULTIVITAMIN [Concomitant]
     Route: 048
  7. MULTIVITAMIN [Concomitant]
     Route: 048
  8. MULTIVITAMIN [Concomitant]
     Route: 048
  9. MULTIVITAMIN [Concomitant]
     Route: 048
  10. MULTIVITAMIN [Concomitant]
     Indication: NUTRITIONAL SUPPORT
     Route: 048

REACTIONS (2)
  - AGEUSIA [None]
  - ANOSMIA [None]
